FAERS Safety Report 10311469 (Version 5)
Quarter: 2016Q1

REPORT INFORMATION
  Report Type: Report from Study
  Country: US (occurrence: US)
  Receive Date: 20140717
  Receipt Date: 20160212
  Transmission Date: 20160525
  Serious: Yes (Hospitalization)
  Sender: FDA-Public Use
  Company Number: US-SA-2014SA092819

PATIENT
  Age: 55 Year
  Sex: Female

DRUGS (2)
  1. AUBAGIO [Suspect]
     Active Substance: TERIFLUNOMIDE
     Indication: MULTIPLE SCLEROSIS
     Route: 048
     Dates: start: 20140612, end: 20140701
  2. AUBAGIO [Suspect]
     Active Substance: TERIFLUNOMIDE
     Indication: MULTIPLE SCLEROSIS
     Dosage: OUT OF MEDICATION FOR 3 DAYS.
     Route: 048
     Dates: start: 20141124, end: 201509

REACTIONS (7)
  - Drug dose omission [Unknown]
  - Condition aggravated [Recovered/Resolved]
  - Oral discomfort [Unknown]
  - Muscle spasms [Unknown]
  - Memory impairment [Unknown]
  - Lack of spontaneous speech [Recovered/Resolved]
  - Psychogenic seizure [Recovered/Resolved]

NARRATIVE: CASE EVENT DATE: 20140702
